FAERS Safety Report 18840667 (Version 1)
Quarter: 2021Q1

REPORT INFORMATION
  Report Type: Other
  Country: US (occurrence: US)
  Receive Date: 20210204
  Receipt Date: 20210204
  Transmission Date: 20210419
  Serious: Yes (Life-Threatening, Hospitalization, Other)
  Sender: FDA-Public Use
  Company Number: US-APPCO PHARMA LLC-2106322

PATIENT
  Age: 37 Year
  Sex: Male

DRUGS (1)
  1. HYDROXYCHLOROQUINE SULFATE. [Suspect]
     Active Substance: HYDROXYCHLOROQUINE SULFATE
     Indication: COVID-19 PROPHYLAXIS
     Route: 065

REACTIONS (10)
  - Hypokalaemia [Recovered/Resolved]
  - Self-medication [Unknown]
  - Overdose [Unknown]
  - Mental status changes [Recovered/Resolved]
  - Electrocardiogram QT prolonged [Recovered/Resolved]
  - Toxicity to various agents [Not Recovered/Not Resolved]
  - Atrioventricular block complete [Recovered/Resolved]
  - Off label use [Unknown]
  - Electrocardiogram QRS complex prolonged [Recovered/Resolved]
  - Blood lactic acid increased [Recovered/Resolved]
